FAERS Safety Report 4369141-1 (Version None)
Quarter: 2004Q2

REPORT INFORMATION
  Report Type: 
  Country: None (occurrence: None)
  Receive Date: 20040527
  Receipt Date: 20040510
  Transmission Date: 20050107
  Serious: Yes (Other)
  Sender: FDA-Public Use
  Company Number: USA040464317

PATIENT
  Age: 60 Year
  Sex: Female

DRUGS (4)
  1. EVISTA [Suspect]
     Indication: OSTEOPOROSIS
     Dates: start: 20021101
  2. FLONASE [Concomitant]
  3. FOSAMAX [Concomitant]
  4. ACTONEL [Concomitant]

REACTIONS (3)
  - CHOKING [None]
  - MUSCLE CRAMP [None]
  - THORACIC VERTEBRAL FRACTURE [None]
